FAERS Safety Report 10285802 (Version 1)
Quarter: 2014Q3

REPORT INFORMATION
  Report Type: Spontaneous
  Country: US (occurrence: None)
  Receive Date: 20140703
  Receipt Date: 20140703
  Transmission Date: 20150326
  Serious: Yes (Hospitalization)
  Sender: FDA-Public Use
  Company Number: UNT-2014-002864

PATIENT
  Age: 66 Year
  Sex: Male
  Weight: 98 kg

DRUGS (2)
  1. WARFARIN (WARFARIN) [Concomitant]
     Active Substance: WARFARIN
  2. TYVASO [Suspect]
     Active Substance: TREPROSTINIL
     Indication: PULMONARY ARTERIAL HYPERTENSION
     Route: 055
     Dates: start: 20140411

REACTIONS (2)
  - International normalised ratio decreased [None]
  - Pneumonia [None]

NARRATIVE: CASE EVENT DATE: 201405
